FAERS Safety Report 11176473 (Version 1)
Quarter: 2015Q2

REPORT INFORMATION
  Report Type: Spontaneous
  Country: US (occurrence: US)
  Receive Date: 20150610
  Receipt Date: 20150610
  Transmission Date: 20150821
  Serious: No
  Sender: FDA-Public Use
  Company Number: US-TEVA-545608USA

PATIENT
  Age: 20 Year
  Sex: Male

DRUGS (2)
  1. TEMOZOLOMIDE. [Suspect]
     Active Substance: TEMOZOLOMIDE
     Indication: NEOPLASM MALIGNANT
     Dosage: 100 MILLIGRAM DAILY; EVERY DAY FOR 42 DAY
     Route: 048
  2. TEMOZOLOMIDE. [Suspect]
     Active Substance: TEMOZOLOMIDE
     Dosage: 20 MILLIGRAM DAILY; EVERY DAY FOR 12 DAYS WITH 100 MG CAPSULE
     Route: 048

REACTIONS (1)
  - Fatigue [Unknown]
